FAERS Safety Report 8012784-4 (Version None)
Quarter: 2011Q4

REPORT INFORMATION
  Report Type: 
  Country: None (occurrence: None)
  Receive Date: 20111223
  Receipt Date: 20111223
  Transmission Date: 20120403
  Serious: Yes (Death)
  Sender: FDA-Public Use
  Company Number: None

PATIENT
  Sex: Male
  Weight: 96.1626 kg

DRUGS (2)
  1. PRADAXA [Suspect]
     Indication: PHLEBITIS
     Dosage: 150MG  BID P.O.
     Route: 048
     Dates: start: 20110727, end: 20110814
  2. PRADAXA [Suspect]
     Indication: CORONARY ARTERIAL STENT INSERTION
     Dosage: 150MG  BID P.O.
     Route: 048
     Dates: start: 20110727, end: 20110814

REACTIONS (2)
  - CEREBROVASCULAR ACCIDENT [None]
  - GASTROINTESTINAL HAEMORRHAGE [None]
